FAERS Safety Report 25035662 (Version 1)
Quarter: 2025Q1

REPORT INFORMATION
  Report Type: Spontaneous
  Country: US (occurrence: US)
  Receive Date: 20250304
  Receipt Date: 20250304
  Transmission Date: 20250409
  Serious: No
  Sender: ROCHE
  Company Number: US-ROCHE-10000218260

PATIENT
  Sex: Female

DRUGS (3)
  1. XOLAIR PFS [Suspect]
     Active Substance: OMALIZUMAB
     Indication: Rheumatoid arthritis
     Dosage: STRENGTH:150MG/ML
     Route: 058
     Dates: start: 202201
  2. XOLAIR PFS [Suspect]
     Active Substance: OMALIZUMAB
  3. RINVOQ [Concomitant]
     Active Substance: UPADACITINIB

REACTIONS (2)
  - Rheumatoid arthritis [Unknown]
  - Off label use [Unknown]
